FAERS Safety Report 8831297 (Version 2)
Quarter: 2012Q4

REPORT INFORMATION
  Report Type: 
  Country: FR (occurrence: FR)
  Receive Date: 20121008
  Receipt Date: 20121016
  Transmission Date: 20130627
  Serious: Yes (Death, Life-Threatening, Hospitalization)
  Sender: FDA-Public Use
  Company Number: FR-PFIZER INC-2012245043

PATIENT
  Age: 79 Year
  Sex: Female

DRUGS (11)
  1. CORDARONE [Suspect]
     Dosage: 100mg daily
     Route: 048
     Dates: start: 201111, end: 20120509
  2. IMUREL [Suspect]
     Dosage: 50 mg, three times daily
     Route: 048
     Dates: start: 20120314, end: 20120509
  3. METOJECT [Suspect]
     Dosage: 20mg weekly
     Dates: end: 20120313
  4. METOJECT [Suspect]
     Dosage: 10 mg, weekly
     Dates: start: 20120314, end: 20120509
  5. CRESTOR [Suspect]
     Dosage: 5 mg daily
     Route: 048
     Dates: start: 201111, end: 20120509
  6. AMAREL [Concomitant]
     Dosage: UNK
  7. PLAVIX [Concomitant]
     Dosage: UNK
  8. MINISINTROM [Concomitant]
     Dosage: UNK
  9. LASILIX [Concomitant]
     Dosage: UNK
  10. SPECIAFOLDINE [Concomitant]
     Dosage: UNK
  11. CORTANCYL [Concomitant]
     Dosage: 10 mg/day

REACTIONS (5)
  - Multi-organ failure [Fatal]
  - Hepatic failure [Fatal]
  - Jaundice [Fatal]
  - Coagulation factor V level decreased [Fatal]
  - Leukopenia [Fatal]
